FAERS Safety Report 21870483 (Version 3)
Quarter: 2023Q1

REPORT INFORMATION
  Report Type: Spontaneous
  Country: US (occurrence: US)
  Receive Date: 20230117
  Receipt Date: 20230303
  Transmission Date: 20230418
  Serious: No
  Sender: FDA-Public Use
  Company Number: US-LUPIN PHARMACEUTICALS INC.-2023-00212

PATIENT

DRUGS (2)
  1. QUINAPRIL [Suspect]
     Active Substance: QUINAPRIL
     Indication: Blood pressure abnormal
     Dosage: 40 MG, QD
     Route: 065
     Dates: end: 202301
  2. QUINAPRIL [Suspect]
     Active Substance: QUINAPRIL
     Dosage: 40 MG, QD
     Route: 065
     Dates: end: 202301

REACTIONS (3)
  - Recalled product administered [Unknown]
  - Out of specification test results [Unknown]
  - No adverse event [Unknown]
